FAERS Safety Report 19118757 (Version 1)
Quarter: 2021Q2

REPORT INFORMATION
  Report Type: Spontaneous
  Country: US (occurrence: US)
  Receive Date: 20210410
  Receipt Date: 20210410
  Transmission Date: 20210717
  Serious: Yes (Other)
  Sender: FDA-Public Use
  Company Number: NVSC2020US349350

PATIENT
  Age: 17 Year
  Sex: Female

DRUGS (4)
  1. VINCRISTINE [Suspect]
     Active Substance: VINCRISTINE
     Indication: CYTOGENETIC ANALYSIS ABNORMAL
  2. CARBOPLATIN. [Suspect]
     Active Substance: CARBOPLATIN
     Indication: GANGLIOGLIOMA
     Dosage: UNK
     Route: 065
     Dates: start: 202004, end: 202006
  3. CARBOPLATIN. [Suspect]
     Active Substance: CARBOPLATIN
     Indication: CYTOGENETIC ANALYSIS ABNORMAL
  4. VINCRISTINE [Suspect]
     Active Substance: VINCRISTINE
     Indication: GANGLIOGLIOMA
     Dosage: UNK
     Route: 065
     Dates: start: 202004, end: 202006

REACTIONS (6)
  - Vocal cord paralysis [Unknown]
  - Metastases to central nervous system [Unknown]
  - Neuropathy peripheral [Unknown]
  - Fatigue [Unknown]
  - Myelosuppression [Unknown]
  - Cyst [Unknown]

NARRATIVE: CASE EVENT DATE: 202005
